FAERS Safety Report 4850215-3 (Version None)
Quarter: 2005Q4

REPORT INFORMATION
  Report Type: 
  Country: None (occurrence: None)
  Receive Date: 20051123
  Receipt Date: 20050804
  Transmission Date: 20060501
  Serious: Yes (Other)
  Sender: FDA-Public Use
  Company Number: 2005111878

PATIENT
  Age: 60 Year
  Sex: Male
  Weight: 111.1313 kg

DRUGS (5)
  1. LIPITOR [Suspect]
     Indication: BLOOD CHOLESTEROL INCREASED
     Dosage: 20 MG (20 MG, 1IN 1 D)
     Dates: start: 20000101
  2. TIKOSYN [Suspect]
     Indication: ATRIAL FIBRILLATION
     Dates: start: 20041201
  3. WARFARIN [Concomitant]
  4. TRICOR [Concomitant]
  5. VALSARTAN [Concomitant]

REACTIONS (6)
  - ATRIAL FIBRILLATION [None]
  - ATRIAL FLUTTER [None]
  - HAEMATOMA [None]
  - METABOLIC SYNDROME [None]
  - PETECHIAE [None]
  - RASH PRURITIC [None]
